FAERS Safety Report 12441966 (Version 1)
Quarter: 2016Q2

REPORT INFORMATION
  Report Type: Spontaneous
  Country: US (occurrence: US)
  Receive Date: 20160607
  Receipt Date: 20160607
  Transmission Date: 20160815
  Serious: Yes (Hospitalization, Other)
  Sender: FDA-Public Use
  Company Number: US-ACTAVIS-2016-11684

PATIENT
  Age: 37 Year
  Sex: Female

DRUGS (3)
  1. ETOPOSIDE (WATSON LABORATORIES) [Suspect]
     Active Substance: ETOPOSIDE
     Indication: MEDULLOBLASTOMA
     Dosage: 60 MG/M2, CYCLICAL - CYCLE DAYS 1, 2 AND 3 AND REPEATED EVERY THREE WEEKS
     Route: 042
  2. CYCLOPHOSPHAMIDE. [Suspect]
     Active Substance: CYCLOPHOSPHAMIDE
     Indication: MEDULLOBLASTOMA
     Dosage: 1000 MG/M2, CYCLICAL - CYCLE DAY 3 AND REPEATED EVERY THREE WEEKS
     Route: 042
  3. CISPLATIN (UNKNOWN) [Suspect]
     Active Substance: CISPLATIN
     Indication: MEDULLOBLASTOMA
     Dosage: 25 MG/M2, CYCLICAL -CYCLES DAYS 1, 2, AND 3 AND REPEATED EVERY THREE WEEKS
     Route: 042

REACTIONS (2)
  - Febrile neutropenia [Unknown]
  - Acute kidney injury [Unknown]
